FAERS Safety Report 7118610-X (Version None)
Quarter: 2010Q4

REPORT INFORMATION
  Report Type: 
  Country: None (occurrence: None)
  Receive Date: 20101123
  Receipt Date: 20101110
  Transmission Date: 20110411
  Serious: No
  Sender: FDA-Public Use
  Company Number: US-ELI_LILLY_AND_COMPANY-US201011003223

PATIENT
  Age: 45 Year
  Sex: Male

DRUGS (4)
  1. CYMBALTA [Suspect]
     Indication: DEPRESSION
     Dosage: 60 MG, UNK
  2. CYMBALTA [Suspect]
     Dosage: 90 MG, UNK
  3. CYMBALTA [Suspect]
     Dosage: 60 MG, UNK
  4. CYMBALTA [Suspect]
     Dosage: 30 MG, UNK

REACTIONS (3)
  - HEPATIC ENZYME INCREASED [None]
  - PAIN [None]
  - WITHDRAWAL SYNDROME [None]
